FAERS Safety Report 13456056 (Version 1)
Quarter: 2017Q2

REPORT INFORMATION
  Report Type: Spontaneous
  Country: US (occurrence: US)
  Receive Date: 20170419
  Receipt Date: 20170419
  Transmission Date: 20170830
  Serious: No
  Sender: FDA-Public Use
  Company Number: US-BAYER-2017-074506

PATIENT
  Age: 86 Year
  Sex: Female
  Weight: 75 kg

DRUGS (6)
  1. BAYER LOW DOSE [Concomitant]
     Active Substance: ASPIRIN
     Indication: ANTICOAGULANT THERAPY
  2. VITAMIN B12 [Concomitant]
     Active Substance: CYANOCOBALAMIN
  3. MIRALAX [Suspect]
     Active Substance: POLYETHYLENE GLYCOL 3350
     Dosage: 17G IN LEMONADE DOSE
     Route: 048
     Dates: start: 2015, end: 20170414
  4. BYSTOLIC [Concomitant]
     Active Substance: NEBIVOLOL HYDROCHLORIDE
  5. LOSARTAN. [Concomitant]
     Active Substance: LOSARTAN
  6. PRAVASTATIN. [Concomitant]
     Active Substance: PRAVASTATIN

REACTIONS (4)
  - Product taste abnormal [None]
  - Erythema [Recovered/Resolved]
  - Pruritus [Recovered/Resolved]
  - Inappropriate schedule of drug administration [Unknown]

NARRATIVE: CASE EVENT DATE: 2016
